FAERS Safety Report 24627255 (Version 2)
Quarter: 2025Q3

REPORT INFORMATION
  Report Type: Spontaneous
  Country: US (occurrence: US)
  Receive Date: 20241116
  Receipt Date: 20250803
  Transmission Date: 20251021
  Serious: Yes (Other)
  Sender: ALEXION PHARMACEUTICALS
  Company Number: US-ASTRAZENECA-202411GLO005231US

PATIENT
  Age: 65 Year
  Sex: Male

DRUGS (1)
  1. OLAPARIB [Suspect]
     Active Substance: OLAPARIB
     Indication: Hormone-refractory prostate cancer
     Dosage: 300 MILLIGRAM, BID
     Route: 065
     Dates: start: 20210430, end: 20210831

REACTIONS (4)
  - Malignant neoplasm progression [Recovering/Resolving]
  - Metastases to bone [Recovering/Resolving]
  - Prostatic specific antigen increased [Recovering/Resolving]
  - Drug resistance [Unknown]
